FAERS Safety Report 11192968 (Version 1)
Quarter: 2015Q2

REPORT INFORMATION
  Report Type: Spontaneous
  Country: US (occurrence: None)
  Receive Date: 20150615
  Receipt Date: 20150615
  Transmission Date: 20150821
  Serious: Yes (Disabling, Other)
  Sender: FDA-Public Use
  Company Number: None

PATIENT
  Age: 22 Year
  Sex: Female
  Weight: 56.7 kg

DRUGS (3)
  1. CITALOPRAM [Concomitant]
     Active Substance: CITALOPRAM HYDROBROMIDE
  2. NEXPLANON [Suspect]
     Active Substance: ETONOGESTREL
  3. LORAZEPAM. [Concomitant]
     Active Substance: LORAZEPAM

REACTIONS (13)
  - Abdominal pain [None]
  - Mood swings [None]
  - Ovarian cyst [None]
  - Headache [None]
  - Depressed mood [None]
  - Fatigue [None]
  - Apathy [None]
  - Nervousness [None]
  - Asthenia [None]
  - Nausea [None]
  - Anxiety [None]
  - Viral infection [None]
  - Dizziness [None]

NARRATIVE: CASE EVENT DATE: 20150610
